FAERS Safety Report 12249303 (Version 3)
Quarter: 2016Q2

REPORT INFORMATION
  Report Type: Spontaneous
  Country: US (occurrence: US)
  Receive Date: 20160408
  Receipt Date: 20160506
  Transmission Date: 20160815
  Serious: No
  Sender: FDA-Public Use
  Company Number: US-SHIRE-US201604155

PATIENT
  Age: 76 Year
  Sex: Female
  Weight: 58.96 kg

DRUGS (2)
  1. LIALDA [Suspect]
     Active Substance: MESALAMINE
     Indication: INFLAMMATORY BOWEL DISEASE
     Dosage: 1.2 G ,1X/DAY:QD
     Route: 048
     Dates: start: 201411
  2. LIALDA [Suspect]
     Active Substance: MESALAMINE
     Dosage: 1.2 G, 2X/DAY:BID
     Route: 048
     Dates: start: 201411

REACTIONS (6)
  - Bladder discomfort [Unknown]
  - Inappropriate schedule of drug administration [Not Recovered/Not Resolved]
  - Product use issue [Not Recovered/Not Resolved]
  - Abdominal distension [Unknown]
  - Pollakiuria [Unknown]
  - Urine analysis abnormal [Unknown]

NARRATIVE: CASE EVENT DATE: 201411
